FAERS Safety Report 11242629 (Version 1)
Quarter: 2015Q3

REPORT INFORMATION
  Report Type: Spontaneous
  Country: IN (occurrence: None)
  Receive Date: 20150702
  Receipt Date: 20150702
  Transmission Date: 20151125
  Serious: Yes (Hospitalization)
  Sender: FDA-Public Use
  Company Number: UCM201506-000434

PATIENT
  Age: 31 Year
  Sex: Female

DRUGS (1)
  1. AMLODIPINE [Suspect]
     Active Substance: AMLODIPINE BESYLATE
     Dosage: 40 TABLETS, EACH OF 5 MG, ORAL
     Route: 048

REACTIONS (9)
  - Toxicity to various agents [None]
  - Vomiting [None]
  - Hypotension [None]
  - Pulmonary oedema [None]
  - Intentional overdose [None]
  - Sinus tachycardia [None]
  - Chest X-ray abnormal [None]
  - Oxygen saturation decreased [None]
  - Dyspnoea [None]
